FAERS Safety Report 20613656 (Version 2)
Quarter: 2022Q2

REPORT INFORMATION
  Report Type: Spontaneous
  Country: MX (occurrence: MX)
  Receive Date: 20220319
  Receipt Date: 20220405
  Transmission Date: 20220720
  Serious: Yes (Death, Other)
  Sender: FDA-Public Use
  Company Number: MX-AMGEN-MEXSP2022048651

PATIENT

DRUGS (1)
  1. BLINATUMOMAB [Suspect]
     Active Substance: BLINATUMOMAB
     Indication: Acute lymphocytic leukaemia recurrent
     Dosage: UNK
     Route: 065

REACTIONS (10)
  - Death [Fatal]
  - B precursor type acute leukaemia [Unknown]
  - Adverse event [Unknown]
  - Cytokine release syndrome [Unknown]
  - Seizure [Unknown]
  - Toxicity to various agents [Unknown]
  - Tremor [Unknown]
  - Pyrexia [Unknown]
  - Headache [Unknown]
  - Infection [Unknown]
